FAERS Safety Report 15047991 (Version 1)
Quarter: 2018Q2

REPORT INFORMATION
  Report Type: Spontaneous
  Country: US (occurrence: US)
  Receive Date: 20180622
  Receipt Date: 20180622
  Transmission Date: 20180711
  Serious: No
  Sender: FDA-Public Use
  Company Number: US-TEVA-2018-US-904325

PATIENT
  Sex: Female

DRUGS (1)
  1. COPAXONE [Suspect]
     Active Substance: GLATIRAMER ACETATE
     Dosage: FORMSTRENGTH WAS UNKNOWN
     Route: 065

REACTIONS (10)
  - Myalgia [Unknown]
  - Injection site reaction [Unknown]
  - Nausea [Unknown]
  - Influenza like illness [Unknown]
  - Pain in extremity [Unknown]
  - Decreased appetite [Unknown]
  - Back pain [Unknown]
  - Chills [Unknown]
  - Asthenia [Unknown]
  - Feeling cold [Unknown]
